FAERS Safety Report 7257276-5 (Version None)
Quarter: 2011Q1

REPORT INFORMATION
  Report Type: 
  Country: None (occurrence: None)
  Receive Date: 20110129
  Receipt Date: 20100706
  Transmission Date: 20110831
  Serious: No
  Sender: FDA-Public Use
  Company Number: US-ABBOTT-10P-163-0655755-00

PATIENT
  Age: 62 Year
  Sex: Female

DRUGS (7)
  1. HUMIRA [Suspect]
     Indication: PSORIASIS
     Dates: start: 20100603
  2. MULTI-VITAMIN [Concomitant]
     Indication: PRODUCT USED FOR UNKNOWN INDICATION
  3. VIT B COMPLEX [Concomitant]
     Indication: PRODUCT USED FOR UNKNOWN INDICATION
  4. TRAZODONE HCL [Concomitant]
     Indication: INSOMNIA
     Dosage: ONCE DAILY AT BEDTIME
  5. ZETIA [Concomitant]
     Indication: BLOOD CHOLESTEROL
  6. HYDROXYCHLOR [Concomitant]
     Indication: SYSTEMIC LUPUS ERYTHEMATOSUS
  7. NEXIUM [Concomitant]
     Indication: GASTROOESOPHAGEAL REFLUX DISEASE

REACTIONS (3)
  - MICTURITION URGENCY [None]
  - URINARY RETENTION [None]
  - SENSATION OF PRESSURE [None]
